FAERS Safety Report 15904558 (Version 6)
Quarter: 2020Q2

REPORT INFORMATION
  Report Type: Report from Study
  Country: GB (occurrence: GB)
  Receive Date: 20190204
  Receipt Date: 20200414
  Transmission Date: 20200713
  Serious: Yes (Hospitalization)
  Sender: FDA-Public Use
  Company Number: GB-ACCORD-105405

PATIENT
  Age: 46 Year
  Sex: Female

DRUGS (23)
  1. TAMIFLU [Concomitant]
     Active Substance: OSELTAMIVIR PHOSPHATE
     Indication: INFLUENZA
     Route: 048
     Dates: start: 20180219, end: 20180226
  2. TRASTUZUMAB. [Suspect]
     Active Substance: TRASTUZUMAB
     Route: 042
     Dates: start: 20150420
  3. LOPERAMIDE [Concomitant]
     Active Substance: LOPERAMIDE
     Route: 048
     Dates: start: 20150516, end: 20150516
  4. AMOXICILLIN AND CLAVULANATE POTASSIUM [Concomitant]
     Active Substance: AMOXICILLIN\CLAVULANATE POTASSIUM
     Indication: INFLUENZA
     Route: 048
     Dates: start: 20180220, end: 20180225
  5. IBUPROFEN. [Concomitant]
     Active Substance: IBUPROFEN
     Indication: SPINAL PAIN
     Route: 048
     Dates: start: 20161229
  6. LAXIDO [Concomitant]
     Active Substance: POLYETHYLENE GLYCOL 3350\POTASSIUM CHLORIDE\SODIUM BICARBONATE\SODIUM CHLORIDE
     Indication: INFLUENZA
     Dosage: 1 SACHET
     Route: 048
     Dates: start: 20180219, end: 20180220
  7. GAVISCON [Concomitant]
     Active Substance: ALUMINUM HYDROXIDE\MAGNESIUM CARBONATE
  8. CALCEOS [Concomitant]
     Active Substance: CALCIUM CARBONATE\CHOLECALCIFEROL
     Route: 048
     Dates: start: 20150713, end: 20150824
  9. DENOSUMAB [Concomitant]
     Active Substance: DENOSUMAB
     Route: 048
     Dates: start: 20180115
  10. HYDROCORTISONE. [Concomitant]
     Active Substance: HYDROCORTISONE
     Indication: ECZEMA
     Dosage: 1 % CREAM
     Route: 065
  11. DENOSUMAB [Concomitant]
     Active Substance: DENOSUMAB
     Route: 058
     Dates: start: 20150623, end: 20170508
  12. E45 [Concomitant]
     Active Substance: LANOLIN\LIGHT MINERAL OIL\PARAFFIN
     Indication: PRURITUS
     Dosage: 1 TABLESPOON
     Route: 061
     Dates: start: 20150515
  13. ENOXAPARIN [Concomitant]
     Active Substance: ENOXAPARIN
     Route: 058
     Dates: start: 20180220
  14. PERTUZUMAB. [Suspect]
     Active Substance: PERTUZUMAB
     Route: 042
     Dates: start: 20150420
  15. MEGACE [Concomitant]
     Active Substance: MEGESTROL ACETATE
     Indication: MENOPAUSAL SYMPTOMS
     Route: 048
     Dates: start: 20150601
  16. E45 [Concomitant]
     Active Substance: LANOLIN\LIGHT MINERAL OIL\PARAFFIN
     Indication: PRURITUS
     Dosage: 1 TABLESPOON
     Route: 061
     Dates: start: 20160515
  17. ADCAL-D3 [Concomitant]
     Active Substance: CALCIUM CARBONATE\CHOLECALCIFEROL
     Route: 048
     Dates: start: 20150623, end: 20150625
  18. SENNA ALEXANDRINA [Concomitant]
     Active Substance: SENNA LEAF
     Indication: INFLUENZA
     Dosage: 1 SACHET
     Route: 048
     Dates: start: 20180219, end: 20180220
  19. DOCETAXEL. [Suspect]
     Active Substance: DOCETAXEL
     Indication: PRODUCT USED FOR UNKNOWN INDICATION
     Route: 042
     Dates: start: 20150512, end: 20150804
  20. DOCETAXEL. [Suspect]
     Active Substance: DOCETAXEL
     Route: 042
     Dates: start: 20150421, end: 20150421
  21. OMEPRAZOLE. [Concomitant]
     Active Substance: OMEPRAZOLE
     Indication: GASTROOESOPHAGEAL REFLUX DISEASE
     Route: 048
     Dates: start: 20150622
  22. SODIUM CHLORIDE. [Concomitant]
     Active Substance: SODIUM CHLORIDE
     Indication: ABDOMINAL PAIN
     Route: 042
     Dates: start: 20160125, end: 20160125
  23. ACICLOVIR [Concomitant]
     Active Substance: ACYCLOVIR
     Route: 048
     Dates: start: 20170211, end: 20170218

REACTIONS (16)
  - Epistaxis [Recovered/Resolved]
  - Hypoaesthesia oral [Recovered/Resolved]
  - Gastritis [Recovered/Resolved]
  - Lethargy [Not Recovered/Not Resolved]
  - Nausea [Recovered/Resolved]
  - Glossodynia [Not Recovered/Not Resolved]
  - Arthralgia [Not Recovered/Not Resolved]
  - Constipation [Unknown]
  - Night sweats [Not Recovered/Not Resolved]
  - Sleep disorder [Unknown]
  - Neutropenic sepsis [Recovered/Resolved]
  - Gastrooesophageal reflux disease [Recovered/Resolved]
  - Mood swings [Recovered/Resolved]
  - Decreased appetite [Recovered/Resolved]
  - Headache [Recovered/Resolved]
  - Dysgeusia [Recovered/Resolved]

NARRATIVE: CASE EVENT DATE: 20150420
